FAERS Safety Report 5556668-X (Version None)
Quarter: 2007Q4

REPORT INFORMATION
  Report Type: 
  Country: None (occurrence: None)
  Receive Date: 20071205
  Receipt Date: 20071126
  Transmission Date: 20080405
  Serious: Yes (Hospitalization)
  Sender: FDA-Public Use
  Company Number: 2007335070

PATIENT
  Age: 61 Year
  Sex: Female
  Weight: 60 kg

DRUGS (3)
  1. ROGAINE [Suspect]
     Indication: ALOPECIA
     Dosage: BID, TOPICAL
     Route: 061
     Dates: start: 20070827, end: 20071020
  2. LEVOTHYROXINE SODIUM [Concomitant]
  3. KARISON (CLOBETASOL PROPIONATE) [Concomitant]

REACTIONS (9)
  - AORTIC VALVE INCOMPETENCE [None]
  - ATRIAL FIBRILLATION [None]
  - BLOOD PRESSURE ABNORMAL [None]
  - CHEST PAIN [None]
  - MITRAL VALVE INCOMPETENCE [None]
  - PALPITATIONS [None]
  - TACHYARRHYTHMIA [None]
  - TACHYCARDIA [None]
  - TRICUSPID VALVE INCOMPETENCE [None]
